FAERS Safety Report 24357810 (Version 1)
Quarter: 2024Q3

REPORT INFORMATION
  Report Type: Spontaneous
  Country: US (occurrence: US)
  Receive Date: 20240924
  Receipt Date: 20240924
  Transmission Date: 20241017
  Serious: No
  Sender: CIPLA
  Company Number: US-CIPLA LTD.-2024US05481

PATIENT

DRUGS (1)
  1. DICLOFENAC [Suspect]
     Active Substance: DICLOFENAC
     Indication: Arthritis
     Dosage: UNK, TWICE A DAY OR 3 TIMES A DAY
     Route: 061

REACTIONS (3)
  - Drug ineffective [Unknown]
  - Product label confusion [Unknown]
  - Incorrect dosage administered [Unknown]
